FAERS Safety Report 7884183-7 (Version None)
Quarter: 2011Q4

REPORT INFORMATION
  Report Type: 
  Country: None (occurrence: None)
  Receive Date: 20111102
  Receipt Date: 20111024
  Transmission Date: 20120403
  Serious: Yes (Hospitalization)
  Sender: FDA-Public Use
  Company Number: JP-GLAXOSMITHKLINE-B0758897A

PATIENT
  Age: 7 Decade
  Sex: Male
  Weight: 58 kg

DRUGS (9)
  1. DEXAMETHASONE [Concomitant]
     Dosage: 40MG PER DAY
  2. CYCLOPHOSPHAMIDE [Concomitant]
     Dosage: 3000MG PER DAY
  3. ALKERAN [Suspect]
     Indication: STEM CELL TRANSPLANT
     Dosage: 200MGM2 PER DAY
     Route: 042
  4. TAMSULOSIN HCL [Concomitant]
  5. ATORVASTATIN [Concomitant]
  6. PREDNISOLONE [Concomitant]
     Dosage: 5MG PER DAY
     Route: 065
     Dates: end: 20090101
  7. VINCRISTINE [Concomitant]
     Dosage: .4MG PER DAY
  8. WARFARIN SODIUM [Concomitant]
  9. ADRIAMYCIN PFS [Concomitant]
     Dosage: 14MG PER DAY

REACTIONS (5)
  - HEPATIC FUNCTION ABNORMAL [None]
  - DECREASED APPETITE [None]
  - SPLENOMEGALY [None]
  - HEPATITIS B [None]
  - MALAISE [None]
